FAERS Safety Report 21323942 (Version 1)
Quarter: 2022Q3

REPORT INFORMATION
  Report Type: Spontaneous
  Country: PT (occurrence: PT)
  Receive Date: 20220912
  Receipt Date: 20220912
  Transmission Date: 20221027
  Serious: Yes (Other)
  Sender: FDA-Public Use
  Company Number: PT-PFIZER INC-202201141707

PATIENT
  Age: 71 Year
  Sex: Male

DRUGS (2)
  1. DOSTINEX [Suspect]
     Active Substance: CABERGOLINE
     Indication: Prolactin-producing pituitary tumour
     Dosage: 3 MG, WEEKLY
  2. DOSTINEX [Suspect]
     Active Substance: CABERGOLINE
     Dosage: 4 MG, WEEKLY
     Dates: start: 202207

REACTIONS (1)
  - Paraparesis [Unknown]

NARRATIVE: CASE EVENT DATE: 20220701
